FAERS Safety Report 6772423-7 (Version None)
Quarter: 2010Q2

REPORT INFORMATION
  Report Type: 
  Country: None (occurrence: None)
  Receive Date: 20100616
  Receipt Date: 20100224
  Transmission Date: 20101027
  Serious: No
  Sender: FDA-Public Use
  Company Number: US-ASTRAZENECA-2010SE08170

PATIENT
  Age: 9 Year
  Sex: Female
  Weight: 22.7 kg

DRUGS (2)
  1. PULMICORT RESPULES [Suspect]
     Indication: ASTHMA
     Route: 055
     Dates: start: 20050101
  2. ALBUTEROL [Concomitant]

REACTIONS (2)
  - IMMUNE SYSTEM DISORDER [None]
  - WHITE BLOOD CELL COUNT DECREASED [None]
